FAERS Safety Report 5722898-7 (Version None)
Quarter: 2008Q2

REPORT INFORMATION
  Report Type: 
  Country: None (occurrence: None)
  Receive Date: 20080425
  Receipt Date: 20080416
  Transmission Date: 20081010
  Serious: Yes (Death, Other)
  Sender: FDA-Public Use
  Company Number: 285-20785-08041451

PATIENT
  Age: 57 Year
  Sex: Female
  Weight: 75.5 kg

DRUGS (8)
  1. THALIDOMIDE [Suspect]
     Indication: MULTIPLE MYELOMA
     Dosage: ORAL
     Route: 048
     Dates: start: 20070101
  2. DEXAMETHASONE TAB [Suspect]
     Indication: MULTIPLE MYELOMA
  3. CYCLOPHOSPHAMIDE [Suspect]
     Indication: MULTIPLE MYELOMA
  4. AMARYL [Concomitant]
  5. LAMIVUDINE [Concomitant]
  6. LEVOSULPIRIDE (LEVOSULPIRIDE) [Concomitant]
  7. ULTRACET (ULTRACET) [Concomitant]
  8. LEGALON (SILYMARIN) [Concomitant]

REACTIONS (5)
  - GENERAL PHYSICAL HEALTH DETERIORATION [None]
  - PNEUMONIA [None]
  - PULMONARY OEDEMA [None]
  - SEPTIC SHOCK [None]
  - URINE OUTPUT DECREASED [None]
